FAERS Safety Report 5377559-3 (Version None)
Quarter: 2007Q2

REPORT INFORMATION
  Report Type: 
  Country: None (occurrence: None)
  Receive Date: 20070530
  Receipt Date: 20070301
  Transmission Date: 20071010
  Serious: No
  Sender: FDA-Public Use
  Company Number: 2007PV030895

PATIENT
  Age: 51 Year
  Sex: Male

DRUGS (6)
  1. BYETTA [Suspect]
     Indication: DIABETES MELLITUS NON-INSULIN-DEPENDENT
     Dosage: 5 MCG;BID;SC
     Route: 058
     Dates: start: 20070301
  2. ASPIRIN [Concomitant]
  3. VITAMIN E [Concomitant]
  4. COD-LIVER OIL [Concomitant]
  5. COG-10 [Concomitant]
  6. LECITHIN [Concomitant]

REACTIONS (3)
  - INJECTION SITE HAEMORRHAGE [None]
  - INJECTION SITE IRRITATION [None]
  - SKIN LACERATION [None]
